FAERS Safety Report 9395401 (Version 1)
Quarter: 2013Q3

REPORT INFORMATION
  Report Type: Spontaneous
  Country: US (occurrence: US)
  Receive Date: 20130711
  Receipt Date: 20130711
  Transmission Date: 20140515
  Serious: Yes (Other)
  Sender: FDA-Public Use
  Company Number: US-ASTELLAS-2013US005819

PATIENT
  Sex: 0

DRUGS (4)
  1. MYRBETRIQ [Suspect]
     Indication: INCONTINENCE
     Dosage: UNK
     Route: 048
  2. BENAZEPRIL [Concomitant]
     Indication: BLOOD PRESSURE
     Dosage: 40 UID/QD
     Route: 065
  3. HYDRALAZINE [Concomitant]
     Indication: BLOOD PRESSURE
     Dosage: 25 TID
     Route: 065
  4. AMLODIPINE [Concomitant]
     Indication: BLOOD PRESSURE
     Dosage: 5 BID

REACTIONS (1)
  - Cerebrovascular accident [Unknown]
